FAERS Safety Report 4712213-X (Version None)
Quarter: 2005Q3

REPORT INFORMATION
  Report Type: 
  Country: None (occurrence: None)
  Receive Date: 20050712
  Receipt Date: 20050707
  Transmission Date: 20060218
  Serious: Yes (Death, Other)
  Sender: FDA-Public Use
  Company Number: JP-SANOFI-SYNTHELABO-F01200501195

PATIENT
  Sex: Female
  Weight: 43 kg

DRUGS (3)
  1. OXALIPLATIN [Suspect]
     Indication: COLON CANCER
     Route: 042
     Dates: start: 20050510, end: 20050510
  2. FLUOROURACIL [Suspect]
     Indication: COLON CANCER
     Dosage: 400 MG/M2 IV BOLUS AND 600 MG/M2 IV 22 HOURS CONTINUOUS INFUSION, Q2W
     Route: 042
     Dates: start: 20050510, end: 20050511
  3. CALCIUM LEVOFOLINATE [Suspect]
     Route: 042
     Dates: start: 20050510, end: 20050511

REACTIONS (2)
  - HAEMOGLOBIN DECREASED [None]
  - THROMBOCYTOPENIA [None]
